FAERS Safety Report 5229278-1 (Version None)
Quarter: 2007Q1

REPORT INFORMATION
  Report Type: 
  Country: None (occurrence: None)
  Receive Date: 20061201
  Receipt Date: 20060808
  Transmission Date: 20070707
  Serious: No
  Sender: FDA-Public Use
  Company Number: US200608001810

PATIENT
  Age: 52 Year
  Sex: Female

DRUGS (3)
  1. CYMBALTA [Suspect]
     Indication: NEURALGIA
     Dosage: 60 MG, DAY (1/D), ORAL
     Route: 048
     Dates: start: 20060501
  2. ANALGESICS [Concomitant]
  3. METHOTREXATE [Concomitant]

REACTIONS (6)
  - ABDOMINAL PAIN [None]
  - CHROMATURIA [None]
  - DIARRHOEA [None]
  - DYSURIA [None]
  - URINE ODOUR ABNORMAL [None]
  - URINE OUTPUT DECREASED [None]
